FAERS Safety Report 25827254 (Version 1)
Quarter: 2025Q3

REPORT INFORMATION
  Report Type: Report from Study
  Country: IN (occurrence: IN)
  Receive Date: 20250920
  Receipt Date: 20250920
  Transmission Date: 20251021
  Serious: Yes (Other)
  Sender: ALEXION PHARMACEUTICALS
  Company Number: IN-AstraZeneca-CH-00953677A

PATIENT
  Sex: Male
  Weight: 63 kg

DRUGS (1)
  1. OSIMERTINIB [Suspect]
     Active Substance: OSIMERTINIB
     Indication: Non-small cell lung cancer
     Dosage: 80 MILLIGRAM, QD

REACTIONS (5)
  - Drug ineffective [Unknown]
  - Metastases to central nervous system [Unknown]
  - Pneumonia [Unknown]
  - Toxicity to various agents [Unknown]
  - Skin infection [Unknown]
